FAERS Safety Report 5782026-9 (Version None)
Quarter: 2008Q2

REPORT INFORMATION
  Report Type: 
  Country: None (occurrence: None)
  Receive Date: 20080623
  Receipt Date: 20080611
  Transmission Date: 20081010
  Serious: Yes (Hospitalization)
  Sender: FDA-Public Use
  Company Number: US-MERCK-0806USA01100

PATIENT
  Age: 55 Year

DRUGS (1)
  1. FOSAMAX PLUS D [Suspect]
     Indication: OSTEOPOROSIS
     Route: 048
     Dates: end: 20080527

REACTIONS (3)
  - CHEST PAIN [None]
  - DIZZINESS [None]
  - NAUSEA [None]
